FAERS Safety Report 9268821 (Version 1)
Quarter: 2013Q2

REPORT INFORMATION
  Report Type: Spontaneous
  Country: US (occurrence: US)
  Receive Date: 20130502
  Receipt Date: 20130502
  Transmission Date: 20140414
  Serious: No
  Sender: FDA-Public Use
  Company Number: US-009507513-1304USA015779

PATIENT
  Age: 38 Year
  Sex: Male

DRUGS (5)
  1. SAPHRIS [Suspect]
     Indication: BIPOLAR I DISORDER
     Dosage: 5 MG, TAKEN QHS
     Route: 060
  2. LITHIUM [Concomitant]
  3. ZOLOFT [Concomitant]
  4. VYVANSE [Concomitant]
  5. CYMBALTA [Concomitant]

REACTIONS (4)
  - Hypnopompic hallucination [Unknown]
  - Dysgeusia [Unknown]
  - Inappropriate schedule of drug administration [Unknown]
  - Underdose [Unknown]
